FAERS Safety Report 11365797 (Version 1)
Quarter: 2015Q3

REPORT INFORMATION
  Report Type: Spontaneous
  Country: IN (occurrence: IN)
  Receive Date: 20150811
  Receipt Date: 20150811
  Transmission Date: 20151125
  Serious: Yes (Disabling)
  Sender: FDA-Public Use
  Company Number: IN-AKORN PHARMACEUTICALS-2015AKN00445

PATIENT
  Age: 13 Year
  Sex: Female

DRUGS (3)
  1. LIGNOCAINE 2% [Concomitant]
     Dosage: UNK UNK, ONCE
     Route: 026
  2. EPINEPHRINE 1:100,000 [Concomitant]
     Dosage: UNK, ONCE
     Route: 026
  3. TRIAMCINOLONE ACETONIDE. [Suspect]
     Active Substance: TRIAMCINOLONE ACETONIDE
     Indication: GIANT CELL EPULIS
     Dosage: 10 MG, ONCE
     Route: 026

REACTIONS (3)
  - Retinal artery occlusion [Recovered/Resolved with Sequelae]
  - Blindness unilateral [Recovered/Resolved with Sequelae]
  - Drug administration error [Recovered/Resolved with Sequelae]
